FAERS Safety Report 8019212-3 (Version None)
Quarter: 2012Q1

REPORT INFORMATION
  Report Type: 
  Country: None (occurrence: None)
  Receive Date: 20120103
  Receipt Date: 20111226
  Transmission Date: 20120608
  Serious: Yes (Hospitalization)
  Sender: FDA-Public Use
  Company Number: JP-JNJFOC-20111211300

PATIENT
  Sex: Female
  Weight: 56 kg

DRUGS (3)
  1. GEMCITABINE HYDROCHLORIDE [Suspect]
     Indication: CHEMOTHERAPY
     Dates: start: 20111108, end: 20111220
  2. TAPENTADOL HYDROCHLORIDE [Suspect]
     Indication: CANCER PAIN
     Route: 048
     Dates: start: 20111207, end: 20111226
  3. PACLITAXEL [Suspect]
     Indication: CHEMOTHERAPY
     Dates: start: 20111108, end: 20111220

REACTIONS (1)
  - INTERSTITIAL LUNG DISEASE [None]
